FAERS Safety Report 10680223 (Version 1)
Quarter: 2014Q4

REPORT INFORMATION
  Report Type: Spontaneous
  Country: CN (occurrence: CN)
  Receive Date: 20141229
  Receipt Date: 20141229
  Transmission Date: 20150529
  Serious: Yes (Other)
  Sender: FDA-Public Use
  Company Number: PHHY2014CN166152

PATIENT
  Age: 88 Year
  Sex: Male

DRUGS (9)
  1. ATORVASTATIN [Interacting]
     Active Substance: ATORVASTATIN
     Indication: MYOCARDIAL ISCHAEMIA
     Dosage: 20 MG, QD
     Route: 065
     Dates: start: 2011
  2. ATORVASTATIN [Interacting]
     Active Substance: ATORVASTATIN
     Indication: CEREBRAL INFARCTION
  3. CICLOSPORIN [Suspect]
     Active Substance: CYCLOSPORINE
     Indication: APLASIA PURE RED CELL
     Dosage: 25 MG, QD
     Route: 065
  4. CICLOSPORIN [Interacting]
     Active Substance: CYCLOSPORINE
     Dosage: 150 MG, BID
     Route: 065
     Dates: start: 201306
  5. TAMSULOSIN [Interacting]
     Active Substance: TAMSULOSIN
     Indication: PRODUCT USED FOR UNKNOWN INDICATION
     Route: 065
  6. ISOSORBIDE DINITRATE. [Interacting]
     Active Substance: ISOSORBIDE DINITRATE
     Indication: PRODUCT USED FOR UNKNOWN INDICATION
     Route: 065
  7. PANTOPRAZOLE [Interacting]
     Active Substance: PANTOPRAZOLE SODIUM
     Indication: PRODUCT USED FOR UNKNOWN INDICATION
     Route: 065
  8. BICALUTAMIDE. [Interacting]
     Active Substance: BICALUTAMIDE
     Indication: PRODUCT USED FOR UNKNOWN INDICATION
     Route: 065
  9. MEGESTROL [Interacting]
     Active Substance: MEGESTROL
     Indication: PRODUCT USED FOR UNKNOWN INDICATION
     Route: 065

REACTIONS (8)
  - Myopathy toxic [Recovering/Resolving]
  - Pain in extremity [Recovering/Resolving]
  - Muscle atrophy [Recovering/Resolving]
  - Abasia [Recovering/Resolving]
  - Muscular weakness [Recovering/Resolving]
  - Muscle oedema [Recovering/Resolving]
  - Drug interaction [Unknown]
  - Myositis [Recovering/Resolving]
